FAERS Safety Report 20005791 (Version 1)
Quarter: 2021Q4

REPORT INFORMATION
  Report Type: Spontaneous
  Country: US (occurrence: US)
  Receive Date: 20211028
  Receipt Date: 20211028
  Transmission Date: 20220304
  Serious: No
  Sender: FDA-Public Use
  Company Number: None

PATIENT
  Age: 89 Year
  Sex: Male

DRUGS (3)
  1. PIQRAY [Suspect]
     Active Substance: ALPELISIB
     Indication: Breast cancer
     Route: 048
     Dates: start: 202110
  2. FASLODEX [Concomitant]
     Active Substance: FULVESTRANT
  3. CARVEDILOL [Concomitant]
     Active Substance: CARVEDILOL

REACTIONS (4)
  - Fatigue [None]
  - Decreased appetite [None]
  - Respiratory disorder [None]
  - Cardiac disorder [None]

NARRATIVE: CASE EVENT DATE: 20211028
